FAERS Safety Report 14679989 (Version 3)
Quarter: 2018Q2

REPORT INFORMATION
  Report Type: Report from Study
  Country: MX (occurrence: MX)
  Receive Date: 20180326
  Receipt Date: 20180524
  Transmission Date: 20180711
  Serious: Yes (Other)
  Sender: FDA-Public Use
  Company Number: PHHY2018MX045346

PATIENT
  Age: 55 Year
  Sex: Male

DRUGS (5)
  1. COSENTYX [Suspect]
     Active Substance: SECUKINUMAB
     Indication: PSORIASIS
     Dosage: 150 MG, QMO (150 MG/ML)
     Route: 058
     Dates: start: 20171229, end: 20180426
  2. METHOTREXATE. [Concomitant]
     Active Substance: METHOTREXATE
     Indication: PSORIATIC ARTHROPATHY
     Dosage: 3 DF, QW
     Route: 065
     Dates: start: 201710
  3. FOLIC ACID. [Concomitant]
     Active Substance: FOLIC ACID
     Indication: PRODUCT USED FOR UNKNOWN INDICATION
     Dosage: 1 DF, QD (EVERY 24 HOURS)
     Route: 065
     Dates: start: 201710
  4. COSENTYX [Suspect]
     Active Substance: SECUKINUMAB
     Indication: PSORIATIC ARTHROPATHY
     Dosage: 1 DF, UNK
     Route: 065
  5. METHOTREXATE. [Concomitant]
     Active Substance: METHOTREXATE
     Dosage: 3 DF, EVERY WEDNESSDAY
     Route: 065
     Dates: start: 20171111

REACTIONS (9)
  - Urticaria [Unknown]
  - Speech disorder [Unknown]
  - Erysipelas [Not Recovered/Not Resolved]
  - Facial paralysis [Not Recovered/Not Resolved]
  - Decreased immune responsiveness [Not Recovered/Not Resolved]
  - Herpes zoster [Unknown]
  - Tooth fracture [Recovered/Resolved]
  - Angioedema [Recovered/Resolved with Sequelae]
  - Ear infection viral [Unknown]

NARRATIVE: CASE EVENT DATE: 201802
